FAERS Safety Report 5810422-X (Version None)
Quarter: 2008Q3

REPORT INFORMATION
  Report Type: 
  Country: None (occurrence: None)
  Receive Date: 20080715
  Receipt Date: 20080703
  Transmission Date: 20090109
  Serious: Yes (Other)
  Sender: FDA-Public Use
  Company Number: GB-PFIZER INC-2008032797

PATIENT
  Sex: Female
  Weight: 91 kg

DRUGS (5)
  1. LYRICA [Suspect]
     Indication: NERVE INJURY
     Route: 048
     Dates: start: 20080201, end: 20080404
  2. LYRICA [Suspect]
     Indication: POST HERPETIC NEURALGIA
  3. LYRICA [Suspect]
     Indication: NEURALGIA
  4. FLUOXETINE [Concomitant]
  5. IBUPROFEN [Concomitant]

REACTIONS (16)
  - AGGRESSION [None]
  - AGITATION [None]
  - ANXIETY [None]
  - ASTHENIA [None]
  - CRYING [None]
  - DEPRESSED MOOD [None]
  - DIZZINESS [None]
  - EMOTIONAL DISORDER [None]
  - FEELING ABNORMAL [None]
  - LIBIDO INCREASED [None]
  - MALAISE [None]
  - MOOD ALTERED [None]
  - NEURALGIA [None]
  - PANIC ATTACK [None]
  - PARANOIA [None]
  - STRESS [None]
